FAERS Safety Report 16066484 (Version 1)
Quarter: 2019Q2

REPORT INFORMATION
  Report Type: Spontaneous
  Country: US (occurrence: US)
  Receive Date: 20190312
  Receipt Date: 20190312
  Transmission Date: 20190711
  Serious: Yes (Other)
  Sender: FDA-Public Use
  Company Number: None

PATIENT
  Age: 65 Year
  Sex: Female
  Weight: 90.5 kg

DRUGS (1)
  1. AIMOVIG [Suspect]
     Active Substance: ERENUMAB-AOOE
     Indication: MIGRAINE
     Route: 058

REACTIONS (11)
  - Flushing [None]
  - Ocular hyperaemia [None]
  - Pruritus [None]
  - Swelling face [None]
  - Oral discomfort [None]
  - Lip swelling [None]
  - Peripheral swelling [None]
  - Paraesthesia oral [None]
  - Eye pruritus [None]
  - Skin burning sensation [None]
  - Erythema [None]

NARRATIVE: CASE EVENT DATE: 20190312
